FAERS Safety Report 10097315 (Version 1)
Quarter: 2014Q2

REPORT INFORMATION
  Report Type: Spontaneous
  Country: BD (occurrence: BD)
  Receive Date: 20140423
  Receipt Date: 20140423
  Transmission Date: 20141212
  Serious: Yes (Death)
  Sender: FDA-Public Use
  Company Number: PHHY2014BD049029

PATIENT
  Age: 90 Year
  Sex: Male

DRUGS (1)
  1. EXELON PATCH [Suspect]
     Dosage: UNK UKN, UNK
     Route: 062

REACTIONS (1)
  - Dementia [Fatal]
